FAERS Safety Report 5968437-7 (Version None)
Quarter: 2008Q4

REPORT INFORMATION
  Report Type: 
  Country: None (occurrence: None)
  Receive Date: 20081119
  Receipt Date: 20080808
  Transmission Date: 20090506
  Serious: No
  Sender: FDA-Public Use
  Company Number: WAES 0805USA03695

PATIENT
  Age: 73 Year
  Sex: Female

DRUGS (3)
  1. JANUVIA [Suspect]
     Indication: TYPE 2 DIABETES MELLITUS
     Dosage: 100 MG/DAILY/PO
     Route: 048
     Dates: start: 20080125, end: 20080101
  2. METFORMIN HCL [Concomitant]
  3. PRAVASTATIN SODIUM [Concomitant]

REACTIONS (1)
  - PRURITUS [None]
